FAERS Safety Report 23990052 (Version 2)
Quarter: 2024Q3

REPORT INFORMATION
  Report Type: Spontaneous
  Country: US (occurrence: US)
  Receive Date: 20240619
  Receipt Date: 20240802
  Transmission Date: 20241017
  Serious: No
  Sender: SANOFI AVENTIS
  Company Number: US-SA-2019SA158311

PATIENT
  Age: 24 Year
  Sex: Female
  Weight: 58.05 kg

DRUGS (1)
  1. DUPIXENT [Suspect]
     Active Substance: DUPILUMAB
     Indication: Dermatitis atopic
     Dosage: 300 MG, QOW
     Route: 058
     Dates: start: 202103

REACTIONS (5)
  - Injection site dryness [Unknown]
  - Ocular hyperaemia [Unknown]
  - Injection site rash [Recovered/Resolved]
  - Eye pruritus [Unknown]
  - Dry eye [Unknown]
